FAERS Safety Report 5213151-9 (Version None)
Quarter: 2007Q1

REPORT INFORMATION
  Report Type: 
  Country: None (occurrence: None)
  Receive Date: 20070119
  Receipt Date: 20070112
  Transmission Date: 20070707
  Serious: Yes (Other)
  Sender: FDA-Public Use
  Company Number: GB-GLAXOSMITHKLINE-B0445305A

PATIENT
  Age: 57 Year
  Sex: Female

DRUGS (3)
  1. NIQUITIN CQ CLEAR 21MG [Suspect]
     Indication: EX-SMOKER
     Dosage: 21MG PER DAY
     Route: 062
     Dates: start: 20061105, end: 20061106
  2. VENTOLIN [Concomitant]
     Route: 065
  3. BECOTIDE [Concomitant]
     Route: 065

REACTIONS (6)
  - ASTHMA [None]
  - CHEST DISCOMFORT [None]
  - LOWER RESPIRATORY TRACT INFECTION [None]
  - MALAISE [None]
  - SUFFOCATION FEELING [None]
  - TREMOR [None]
